FAERS Safety Report 5082097-1 (Version None)
Quarter: 2006Q3

REPORT INFORMATION
  Report Type: 
  Country: None (occurrence: None)
  Receive Date: 20060811
  Receipt Date: 20060802
  Transmission Date: 20061208
  Serious: Yes (Hospitalization)
  Sender: FDA-Public Use
  Company Number: 2006094867

PATIENT
  Age: 50 Year
  Sex: Female

DRUGS (2)
  1. NORVASC [Suspect]
     Indication: HYPERTENSION
     Dosage: ORAL
     Route: 048
  2. ACETAMINOPHEN [Concomitant]

REACTIONS (3)
  - COAGULOPATHY [None]
  - HAEMORRHAGE SUBCUTANEOUS [None]
  - RASH [None]
